FAERS Safety Report 17043608 (Version 2)
Quarter: 2019Q4

REPORT INFORMATION
  Report Type: Spontaneous
  Country: US (occurrence: US)
  Receive Date: 20191118
  Receipt Date: 20191120
  Transmission Date: 20200122
  Serious: No
  Sender: FDA-Public Use
  Company Number: US-PFIZER INC-2019496271

PATIENT
  Age: 75 Year
  Sex: Male
  Weight: 63.49 kg

DRUGS (7)
  1. GABAPENTIN. [Suspect]
     Active Substance: GABAPENTIN
     Indication: INFUSION SITE PAIN
     Dosage: UNK
  2. PREPARATION H NOS [Suspect]
     Active Substance: COCOA BUTTER\PETROLATUM\PHENYLEPHRINE HYDROCHLORIDE\PHENYLEPHRINE HYDROCHLORIDE OR MINERAL OIL
     Indication: INFUSION SITE PAIN
     Dosage: UNK
  3. SILDENAFIL CITRATE. [Concomitant]
     Active Substance: SILDENAFIL CITRATE
     Dosage: UNK
  4. OPSUMIT [Concomitant]
     Active Substance: MACITENTAN
     Dosage: UNK
  5. REMODULIN [Concomitant]
     Active Substance: TREPROSTINIL
     Indication: PULMONARY ARTERIAL HYPERTENSION
     Dosage: 2 NG/KG/MIN, CONTINUOUS SUBCUTANEOUS
     Route: 058
     Dates: start: 20191010
  6. PLO GEL MEDIFLO [Suspect]
     Active Substance: LECITHIN\POLOXAMER 407
     Indication: INFUSION SITE PAIN
     Dosage: UNK
  7. TRAMADOL. [Suspect]
     Active Substance: TRAMADOL
     Indication: INFUSION SITE PAIN
     Dosage: UNK

REACTIONS (1)
  - Drug ineffective for unapproved indication [Unknown]
